FAERS Safety Report 6721657-6 (Version None)
Quarter: 2010Q2

REPORT INFORMATION
  Report Type: 
  Country: None (occurrence: None)
  Receive Date: 20100512
  Receipt Date: 20100506
  Transmission Date: 20101027
  Serious: Yes (Death, Hospitalization, Other)
  Sender: FDA-Public Use
  Company Number: JP-ELI_LILLY_AND_COMPANY-JP201005001485

PATIENT
  Sex: Male
  Weight: 46.7 kg

DRUGS (12)
  1. GEMCITABINE HCL [Suspect]
     Indication: PANCREATIC CARCINOMA NON-RESECTABLE
     Dosage: 1000 MG/M2, OTHER
     Route: 042
     Dates: start: 20100224, end: 20100101
  2. GEMCITABINE HCL [Suspect]
     Dosage: 800 MG/M2, OTHER
     Route: 042
     Dates: start: 20100407, end: 20100414
  3. TOCILIZUMAB [Suspect]
     Indication: PANCREATIC CARCINOMA NON-RESECTABLE
     Dosage: 8 MG/KG, OTHER
     Route: 042
     Dates: start: 20100225, end: 20100407
  4. LOXOPROFEN [Concomitant]
     Indication: CANCER PAIN
     Dosage: 60 MG, 3/D
     Route: 048
     Dates: start: 20100128, end: 20100503
  5. OXINORM [Concomitant]
     Indication: CANCER PAIN
     Dosage: 2.5 MG, AS NEEDED
     Route: 048
     Dates: start: 20100205, end: 20100503
  6. OXYCONTIN [Concomitant]
     Indication: CANCER PAIN
     Dosage: 10 MG, 3/D
     Route: 048
     Dates: start: 20100301, end: 20100429
  7. OXYCONTIN [Concomitant]
     Dosage: 15 MG, 3/D
     Route: 048
     Dates: start: 20100430, end: 20100503
  8. LANSOPRAZOLE [Concomitant]
     Indication: PROPHYLAXIS
     Dosage: 15 MG, DAILY (1/D)
     Route: 048
     Dates: start: 20100301, end: 20100503
  9. LAXOBERON [Concomitant]
     Indication: CONSTIPATION
     Dosage: 10 ML, AS NEEDED
     Route: 048
     Dates: start: 20100305, end: 20100502
  10. SOLANAX [Concomitant]
     Indication: NAUSEA
     Dosage: 0.4 MG, AS NEEDED
     Route: 048
     Dates: start: 20100308, end: 20100503
  11. MAGMITT [Concomitant]
     Indication: CONSTIPATION
     Dosage: 660 MG, 3/D
     Route: 048
     Dates: start: 20100325, end: 20100503
  12. DECADRON [Concomitant]
     Indication: PALLIATIVE CARE
     Dosage: 1 MG, 2/D
     Route: 048
     Dates: start: 20100424, end: 20100428

REACTIONS (2)
  - DISSEMINATED INTRAVASCULAR COAGULATION [None]
  - MALIGNANT NEOPLASM PROGRESSION [None]
